FAERS Safety Report 21008353 (Version 7)
Quarter: 2023Q2

REPORT INFORMATION
  Report Type: Report from Study
  Country: US (occurrence: None)
  Receive Date: 20220627
  Receipt Date: 20230617
  Transmission Date: 20230722
  Serious: Yes (Hospitalization)
  Sender: FDA-Public Use
  Company Number: US-ROCHE-3123033

PATIENT
  Age: 73 Year
  Sex: Male
  Weight: 80.1 kg

DRUGS (37)
  1. RITUXIMAB [Suspect]
     Active Substance: RITUXIMAB
     Indication: Follicular lymphoma stage II
     Dosage: DATE OF LAST DOSE PRIOR TO EVENT: 14/APR/2022
     Route: 042
     Dates: start: 20211223, end: 20220113
  2. RITUXIMAB [Suspect]
     Active Substance: RITUXIMAB
     Route: 042
     Dates: start: 20220120, end: 20220414
  3. EPCORITAMAB [Suspect]
     Active Substance: EPCORITAMAB
     Indication: Follicular lymphoma stage II
     Dosage: PRIMING DOSE
     Route: 058
     Dates: start: 20211223, end: 20211223
  4. EPCORITAMAB [Suspect]
     Active Substance: EPCORITAMAB
     Dosage: INTERMEDIATE DOSE
     Route: 058
     Dates: start: 20211230, end: 20211230
  5. EPCORITAMAB [Suspect]
     Active Substance: EPCORITAMAB
     Dosage: FULL DOSE
     Route: 058
     Dates: start: 20220106, end: 20220210
  6. EPCORITAMAB [Suspect]
     Active Substance: EPCORITAMAB
     Dosage: FULL DOSE
     Route: 058
     Dates: start: 20220217, end: 20220512
  7. EPCORITAMAB [Suspect]
     Active Substance: EPCORITAMAB
     Dosage: FULL DOSE
     Route: 058
     Dates: start: 20220616, end: 20220616
  8. LENALIDOMIDE [Suspect]
     Active Substance: LENALIDOMIDE
     Indication: Follicular lymphoma stage II
     Route: 048
     Dates: start: 20211223, end: 20220109
  9. LENALIDOMIDE [Suspect]
     Active Substance: LENALIDOMIDE
     Route: 048
     Dates: start: 20220120, end: 20220209
  10. LENALIDOMIDE [Suspect]
     Active Substance: LENALIDOMIDE
     Route: 048
     Dates: start: 20220217, end: 20220309
  11. LENALIDOMIDE [Suspect]
     Active Substance: LENALIDOMIDE
     Route: 048
     Dates: start: 20220317, end: 20220406
  12. LENALIDOMIDE [Suspect]
     Active Substance: LENALIDOMIDE
     Route: 048
     Dates: start: 20220414, end: 20220504
  13. LENALIDOMIDE [Suspect]
     Active Substance: LENALIDOMIDE
     Route: 048
     Dates: start: 20220512, end: 20220512
  14. LENALIDOMIDE [Suspect]
     Active Substance: LENALIDOMIDE
     Route: 048
     Dates: start: 20220514, end: 20220515
  15. LENALIDOMIDE [Suspect]
     Active Substance: LENALIDOMIDE
     Route: 048
     Dates: start: 20220517, end: 20220517
  16. LENALIDOMIDE [Suspect]
     Active Substance: LENALIDOMIDE
     Dosage: ALSO RECEIVED DOSES ON 21/MAY/2022, 24/MAY/2022, 26/MAY/2022, 28MAY/2022, 31/MAY/2022, 16/JUN/2022
     Route: 048
     Dates: start: 20220519, end: 20220519
  17. COMBIGAN [Concomitant]
     Active Substance: BRIMONIDINE TARTRATE\TIMOLOL MALEATE
     Dates: start: 2022
  18. DIGOXIN [Concomitant]
     Active Substance: DIGOXIN
     Dates: start: 20211217
  19. ENTRESTO [Concomitant]
     Active Substance: SACUBITRIL\VALSARTAN
  20. EPLERENONE [Concomitant]
     Active Substance: EPLERENONE
     Dates: start: 20210821, end: 20220512
  21. FINASTERIDE [Concomitant]
     Active Substance: FINASTERIDE
     Dates: start: 20210820
  22. LIPITOR [Concomitant]
     Active Substance: ATORVASTATIN CALCIUM
     Dates: start: 2021
  23. LUMIGAN [Concomitant]
     Active Substance: BIMATOPROST
     Dates: start: 2021
  24. MYRBETRIQ [Concomitant]
     Active Substance: MIRABEGRON
  25. OXYCODONE [Concomitant]
     Active Substance: OXYCODONE
  26. PANTOPRAZOLE [Concomitant]
     Active Substance: PANTOPRAZOLE
     Dates: start: 20210821
  27. SENNOSIDES A AND B [Concomitant]
     Active Substance: SENNOSIDES A AND B
     Dates: start: 20210821
  28. TRAVOPROST [Concomitant]
     Active Substance: TRAVOPROST
  29. TYLENOL [Concomitant]
     Active Substance: ACETAMINOPHEN
     Dates: start: 20220127
  30. PREDNISONE [Concomitant]
     Active Substance: PREDNISONE
     Route: 048
     Dates: start: 20211223, end: 20220113
  31. ACYCLOVIR [Concomitant]
     Active Substance: ACYCLOVIR
     Dates: start: 20210824
  32. APIXABAN [Concomitant]
     Active Substance: APIXABAN
     Dates: start: 20210823
  33. BRIMONIDINE [Concomitant]
     Active Substance: BRIMONIDINE TARTRATE
  34. CARVEDILOL [Concomitant]
     Active Substance: CARVEDILOL
     Dates: start: 20220405
  35. MAGNESIUM SULFATE [Concomitant]
     Active Substance: MAGNESIUM SULFATE
     Dates: start: 20211215
  36. PEGFILGRASTIM [Concomitant]
     Active Substance: PEGFILGRASTIM
     Dates: start: 20220210
  37. VALSARTAN [Concomitant]
     Active Substance: VALSARTAN
     Dates: start: 20211216

REACTIONS (1)
  - Electrocardiogram T wave inversion [Recovered/Resolved]

NARRATIVE: CASE EVENT DATE: 20220609
